FAERS Safety Report 5218561-1 (Version None)
Quarter: 2007Q1

REPORT INFORMATION
  Report Type: 
  Country: None (occurrence: None)
  Receive Date: 20061130
  Receipt Date: 20060915
  Transmission Date: 20070707
  Serious: Yes (Hospitalization, Other)
  Sender: FDA-Public Use
  Company Number: US200606000884

PATIENT
  Age: 53 Year
  Sex: Female
  Weight: 79.4 kg

DRUGS (7)
  1. ZYPREXA [Suspect]
     Dates: start: 20021001
  2. RISPERIDONE [Concomitant]
  3. WELLBUTRIN [Concomitant]
  4. PAXIL [Concomitant]
  5. EFFEXOR [Concomitant]
  6. ACEBUTOLOL [Concomitant]
  7. PREDNISOLONE [Concomitant]

REACTIONS (4)
  - DIABETES MELLITUS [None]
  - HYPERTENSION [None]
  - METABOLIC DISORDER [None]
  - PANCREATITIS [None]
